FAERS Safety Report 6032372-9 (Version None)
Quarter: 2009Q1

REPORT INFORMATION
  Report Type: 
  Country: None (occurrence: None)
  Receive Date: 20090109
  Receipt Date: 20081229
  Transmission Date: 20090719
  Serious: Yes (Disabling, Other)
  Sender: FDA-Public Use
  Company Number: US-PFIZER INC-2008160788

PATIENT
  Sex: Male
  Weight: 113.39 kg

DRUGS (14)
  1. TIKOSYN [Suspect]
     Indication: ATRIAL FIBRILLATION
     Dosage: 500 UG, 2X/DAY
     Dates: start: 20080126
  2. GUAR GUM [Concomitant]
     Dosage: UNK
  3. PRILOSEC [Concomitant]
     Dosage: UNK
  4. INSPRA [Concomitant]
     Dosage: 50 MG, 1X/DAY
  5. FUROSEMIDE [Concomitant]
     Dosage: 20 MG, 4X/DAY
  6. METOPROLOL TARTRATE [Concomitant]
     Dosage: 20 MG, 1X/DAY
  7. PLAVIX [Concomitant]
     Dosage: 75 MG, 1X/DAY
  8. LISINOPRIL [Concomitant]
     Dosage: 10 MG, 1X/DAY
  9. LIPITOR [Concomitant]
     Dosage: 40 MG, UNK
  10. ASPIRIN [Concomitant]
     Dosage: 1 DF, 1X/DAY
  11. MAGNESIUM SULFATE [Concomitant]
     Dosage: 400 MG, 2X/DAY
  12. NIACIN [Concomitant]
     Dosage: UNK
  13. ALPRAZOLAM [Concomitant]
     Indication: ANXIETY
     Dosage: 0.25 MG, 2X/DAY
  14. METOLAZONE [Concomitant]
     Dosage: 2.5 MG, 1X/DAY

REACTIONS (1)
  - TOXIC NEUROPATHY [None]
